FAERS Safety Report 12752349 (Version 1)
Quarter: 2016Q3

REPORT INFORMATION
  Report Type: Spontaneous
  Country: US (occurrence: US)
  Receive Date: 20160915
  Receipt Date: 20160915
  Transmission Date: 20161109
  Serious: Yes (Death)
  Sender: FDA-Public Use
  Company Number: US-SPECTRUM PHARMACEUTICALS, INC.-16-F-US-00249

PATIENT
  Age: 60 Year
  Sex: Male

DRUGS (4)
  1. 5-FU                               /00098801/ [Concomitant]
     Active Substance: FLUOROURACIL
     Indication: COLON CANCER STAGE IV
  2. BEVACIZUMAB [Concomitant]
     Active Substance: BEVACIZUMAB
     Indication: COLON CANCER STAGE IV
  3. FUSILEV [Suspect]
     Active Substance: LEVOLEUCOVORIN CALCIUM
     Indication: COLON CANCER STAGE IV
     Dosage: 400 MG, EVERY 14 DAYS
     Route: 042
     Dates: start: 20160118, end: 20160418
  4. XELODA [Concomitant]
     Active Substance: CAPECITABINE
     Indication: COLON CANCER STAGE IV

REACTIONS (1)
  - Death [Fatal]

NARRATIVE: CASE EVENT DATE: 20160724
